FAERS Safety Report 11139715 (Version 1)
Quarter: 2015Q2

REPORT INFORMATION
  Report Type: Spontaneous
  Country: US (occurrence: None)
  Receive Date: 20150526
  Receipt Date: 20150526
  Transmission Date: 20150821
  Serious: No
  Sender: FDA-Public Use
  Company Number: None

PATIENT
  Age: 76 Year
  Sex: Female

DRUGS (1)
  1. BOTOX [Suspect]
     Active Substance: ONABOTULINUMTOXINA
     Dosage: Q 3 MONTHS, IM
     Route: 030
     Dates: start: 20090319

REACTIONS (1)
  - Nausea [None]

NARRATIVE: CASE EVENT DATE: 201505
